FAERS Safety Report 4299305-7 (Version None)
Quarter: 2004Q1

REPORT INFORMATION
  Report Type: 
  Country: None (occurrence: None)
  Receive Date: 20040217
  Receipt Date: 20040203
  Transmission Date: 20041129
  Serious: Yes (Hospitalization)
  Sender: FDA-Public Use
  Company Number: 2004006797

PATIENT
  Age: 18 Year
  Sex: Male
  Weight: 69.8539 kg

DRUGS (2)
  1. BENADRYL [Suspect]
     Indication: INFLUENZA
     Dosage: 2 CAPSULES ONCE, ORAL
     Route: 048
     Dates: start: 20031010, end: 20031010
  2. NITE-TIME COLD MEDICINE (PARACETAMOL, DEXTROMETHORPHAN HYDROBROMIDE, P [Suspect]
     Indication: INFLUENZA
     Dosage: 2 LIQUIDCAPS ONCE, ORAL
     Route: 048
     Dates: start: 20031010, end: 20031010

REACTIONS (9)
  - BLOOD POTASSIUM INCREASED [None]
  - DRUG SCREEN POSITIVE [None]
  - FEELING ABNORMAL [None]
  - HEART RATE DECREASED [None]
  - NAUSEA [None]
  - SOMNOLENCE [None]
  - VERTIGO [None]
  - VISION BLURRED [None]
  - VOMITING [None]
